APPROVED DRUG PRODUCT: VANCOMYCIN HYDROCHLORIDE
Active Ingredient: VANCOMYCIN HYDROCHLORIDE
Strength: EQ 5GM BASE/VIAL
Dosage Form/Route: POWDER;INTRAVENOUS, ORAL
Application: N210274 | Product #003
Applicant: ZHEJIANG NOVUS PHARMACEUTICALS CO LTD
Approved: Jan 20, 2023 | RLD: Yes | RS: Yes | Type: RX